FAERS Safety Report 18180682 (Version 1)
Quarter: 2020Q3

REPORT INFORMATION
  Report Type: Spontaneous
  Country: US (occurrence: US)
  Receive Date: 20200820
  Receipt Date: 20200820
  Transmission Date: 20201103
  Serious: Yes (Hospitalization)
  Sender: FDA-Public Use
  Company Number: None

PATIENT
  Age: 52 Year
  Sex: Female

DRUGS (1)
  1. GLEEVEC [Suspect]
     Active Substance: IMATINIB MESYLATE
     Indication: CHRONIC MYELOID LEUKAEMIA
     Dosage: ?          OTHER DOSE:1 TAB;?
     Route: 048
     Dates: start: 20190823

REACTIONS (2)
  - Bone marrow transplant [None]
  - Therapy interrupted [None]

NARRATIVE: CASE EVENT DATE: 20200819
